FAERS Safety Report 5694168-7 (Version None)
Quarter: 2008Q2

REPORT INFORMATION
  Report Type: 
  Country: None (occurrence: None)
  Receive Date: 20080402
  Receipt Date: 20080318
  Transmission Date: 20081010
  Serious: Yes (Hospitalization)
  Sender: FDA-Public Use
  Company Number: ACO_00452_2008

PATIENT
  Sex: Female

DRUGS (16)
  1. ZANAFLEX [Suspect]
     Indication: SCIATICA
     Dosage: DF ORAL
     Route: 048
  2. AMBIEN [Suspect]
     Indication: INSOMNIA
     Dosage: DF ORAL
     Route: 048
     Dates: start: 20070201, end: 20070611
  3. TRAZODONE HCL [Suspect]
     Indication: INSOMNIA
     Dosage: (100 MG QD AT BED TIME ORAL), (1 DF PRN AT NIGHT)
     Route: 048
  4. LAMICTAL [Suspect]
     Indication: SLEEP DISORDER
     Dosage: 200 MG QD ORAL
  5. TYLENOL W/ CODEINE [Suspect]
     Indication: DRUG USE FOR UNKNOWN INDICATION
     Dosage: 1 DF QID ORAL
     Route: 048
     Dates: end: 20070601
  6. ABILIFY [Suspect]
     Indication: DRUG USE FOR UNKNOWN INDICATION
     Dosage: 30 MG QD ORAL
  7. LYRICA [Suspect]
     Indication: DRUG USE FOR UNKNOWN INDICATION
     Dosage: DF
     Dates: end: 20070601
  8. SKELAXIN [Suspect]
     Indication: DRUG USE FOR UNKNOWN INDICATION
     Dosage: 800 MG TID ORAL
     Route: 048
     Dates: end: 20070601
  9. ROXICET [Suspect]
     Indication: DRUG USE FOR UNKNOWN INDICATION
     Dosage: 2 DF 1X/6 HOURS 325/5 MG ORAL
     Route: 048
     Dates: end: 20070601
  10. ROZEREM [Suspect]
     Indication: DRUG USE FOR UNKNOWN INDICATION
     Dosage: DF
     Dates: end: 20070601
  11. TEMAZEPAM [Suspect]
     Indication: DRUG USE FOR UNKNOWN INDICATION
     Dosage: DF
     Dates: end: 20070601
  12. LITHIUM CARBONATE [Suspect]
     Dosage: 300 MG ORAL
     Route: 048
  13. LIPITOR [Concomitant]
  14. PROTONIX [Concomitant]
  15. PROVIGIL [Concomitant]
  16. LEVOXYL [Concomitant]

REACTIONS (23)
  - ATELECTASIS [None]
  - BLOOD LACTIC ACID INCREASED [None]
  - BRADYCARDIA [None]
  - BRONCHOSPASM [None]
  - CLAUSTROPHOBIA [None]
  - DIPLOPIA [None]
  - DIZZINESS [None]
  - DRUG HYPERSENSITIVITY [None]
  - FATIGUE [None]
  - LOSS OF CONSCIOUSNESS [None]
  - MENTAL STATUS CHANGES [None]
  - MIDDLE INSOMNIA [None]
  - NAUSEA [None]
  - OXYGEN SATURATION DECREASED [None]
  - PNEUMONIA ASPIRATION [None]
  - SLEEP APNOEA SYNDROME [None]
  - SLEEP-RELATED EATING DISORDER [None]
  - SLUGGISHNESS [None]
  - SOMNAMBULISM [None]
  - SOMNOLENCE [None]
  - SPEECH DISORDER [None]
  - SYNCOPE [None]
  - VOMITING [None]
